FAERS Safety Report 7933484-2 (Version None)
Quarter: 2011Q4

REPORT INFORMATION
  Report Type: 
  Country: None (occurrence: None)
  Receive Date: 20111122
  Receipt Date: 20111110
  Transmission Date: 20120403
  Serious: Yes (Other)
  Sender: FDA-Public Use
  Company Number: US-ELI_LILLY_AND_COMPANY-US201001004395

PATIENT
  Sex: Female

DRUGS (17)
  1. METOPROLOL TARTRATE [Concomitant]
     Indication: BLOOD PRESSURE
  2. CARVEDILOL [Concomitant]
     Indication: BLOOD PRESSURE
  3. FORTEO [Suspect]
     Dosage: 20 UG, DAILY (1/D)
  4. FORTEO [Suspect]
     Dosage: 20 UG, DAILY (1/D)
  5. FORTEO [Suspect]
     Dosage: 20 UG, QD
  6. DIOVAN [Concomitant]
     Indication: BLOOD PRESSURE
  7. EXELON [Concomitant]
  8. FORTEO [Suspect]
     Dosage: 20 UG, DAILY (1/D)
  9. FORTEO [Suspect]
     Dosage: 20 UG, QD
  10. MELOXICAM [Concomitant]
     Dosage: UNK
  11. LISINOPRIL [Concomitant]
     Indication: BLOOD PRESSURE
  12. DARVOCET [Concomitant]
     Indication: PAIN
  13. FORTEO [Suspect]
     Dosage: 20 UG, QD
  14. FORTEO [Suspect]
     Dosage: 20 UG, DAILY (1/D)
  15. ANALGESICS [Concomitant]
  16. FORTEO [Suspect]
     Indication: OSTEOPOROSIS
     Dosage: 20 UG, DAILY (1/D)
     Dates: start: 20091027
  17. CYMBALTA [Concomitant]

REACTIONS (21)
  - DRUG DOSE OMISSION [None]
  - NERVOUSNESS [None]
  - GAIT DISTURBANCE [None]
  - ASTHENIA [None]
  - BONE DISORDER [None]
  - FALL [None]
  - SKIN INJURY [None]
  - SCAR [None]
  - DIZZINESS [None]
  - DEPRESSED LEVEL OF CONSCIOUSNESS [None]
  - DEMENTIA ALZHEIMER'S TYPE [None]
  - HEAD INJURY [None]
  - LETHARGY [None]
  - LACERATION [None]
  - CONTUSION [None]
  - HYPOTENSION [None]
  - RHINORRHOEA [None]
  - SKIN LESION [None]
  - DISORIENTATION [None]
  - AMNESIA [None]
  - SPINAL DEFORMITY [None]
